FAERS Safety Report 7036247-8 (Version None)
Quarter: 2010Q4

REPORT INFORMATION
  Report Type: 
  Country: None (occurrence: None)
  Receive Date: 20101008
  Receipt Date: 20100928
  Transmission Date: 20110411
  Serious: Yes (Other)
  Sender: FDA-Public Use
  Company Number: PHHY2010IN64075

PATIENT
  Age: 42 Year
  Sex: Male

DRUGS (4)
  1. CYCLOSPORINE [Suspect]
     Indication: RENAL TRANSPLANT
     Dosage: UNK
  2. PREDNISONE [Concomitant]
     Indication: RENAL TRANSPLANT
  3. AZATHIOPRINE [Concomitant]
     Indication: RENAL TRANSPLANT
  4. SIROLIMUS [Concomitant]
     Dosage: UNK

REACTIONS (6)
  - ANGINA PECTORIS [None]
  - BLOOD CREATININE INCREASED [None]
  - PNEUMONITIS [None]
  - PYREXIA [None]
  - RENAL GRAFT LOSS [None]
  - SEPSIS [None]
